FAERS Safety Report 5221640-6 (Version None)
Quarter: 2007Q1

REPORT INFORMATION
  Report Type: 
  Country: None (occurrence: None)
  Receive Date: 20070129
  Receipt Date: 20070116
  Transmission Date: 20070707
  Serious: Yes (Hospitalization)
  Sender: FDA-Public Use
  Company Number: PHRM2007FR00541

PATIENT
  Age: 53 Year
  Sex: Female

DRUGS (2)
  1. AREDIA [Suspect]
     Indication: METASTASES TO BONE
     Dates: start: 20060303, end: 20061219
  2. ZOMETA [Suspect]
     Indication: METASTASES TO BONE
     Dates: start: 20030814, end: 20060208

REACTIONS (6)
  - BACK PAIN [None]
  - BONE DISORDER [None]
  - OSTEONECROSIS [None]
  - PAIN IN JAW [None]
  - PERIODONTITIS [None]
  - TOOTH LOSS [None]
